FAERS Safety Report 13357935 (Version 2)
Quarter: 2017Q2

REPORT INFORMATION
  Report Type: Spontaneous
  Country: US (occurrence: US)
  Receive Date: 20170322
  Receipt Date: 20170424
  Transmission Date: 20170830
  Serious: No
  Sender: FDA-Public Use
  Company Number: US-PFIZER INC-2017119737

PATIENT
  Sex: Female

DRUGS (1)
  1. ROCURONIUM BROMIDE. [Suspect]
     Active Substance: ROCURONIUM BROMIDE
     Dosage: UNK
     Dates: start: 20170316

REACTIONS (3)
  - Accidental exposure to product [Unknown]
  - Tremor [Unknown]
  - Product container issue [Unknown]

NARRATIVE: CASE EVENT DATE: 20170316
